FAERS Safety Report 6267654-9 (Version None)
Quarter: 2009Q3

REPORT INFORMATION
  Report Type: 
  Country: None (occurrence: None)
  Receive Date: 20090714
  Receipt Date: 20090630
  Transmission Date: 20100115
  Serious: Yes (Other)
  Sender: FDA-Public Use
  Company Number: PHHY2009CA25989

PATIENT
  Sex: Female

DRUGS (14)
  1. DIOVAN [Suspect]
     Dosage: 180 MG, QD
     Route: 048
     Dates: start: 20070511
  2. DIOVAN [Suspect]
     Dosage: 180 MG, QD
     Route: 048
     Dates: start: 20071013
  3. DIOVAN [Suspect]
     Dosage: 160 MG, QD
     Route: 048
     Dates: start: 20071210
  4. DIOVAN [Suspect]
     Dosage: 80 MG, QD
     Route: 048
     Dates: start: 20080303
  5. DIOVAN [Suspect]
     Dosage: 160 MG, BID
     Route: 048
     Dates: start: 20080602
  6. DIOVAN [Suspect]
     Dosage: 160 MG, BID
     Route: 048
     Dates: start: 20080623
  7. DIOVAN [Suspect]
     Dosage: 160 MG, BID
     Route: 048
     Dates: start: 20090331
  8. GLUCONORM [Concomitant]
     Indication: DIABETES MELLITUS
     Dosage: 1 TABLET  IN THE MORNING, 1 TABLET IN THE EVENING
  9. AVANDIA [Concomitant]
     Dosage: 1 TABLET (2 GM)
  10. LIPITOR [Concomitant]
     Dosage: 1 TABLET ( 10 MG)
  11. EVISTA [Concomitant]
     Dosage: 1 DF, UNK
  12. ASPIRIN [Concomitant]
     Dosage: 80 MG, UNK
  13. CALCIUM WITH VITAMIN D [Concomitant]
     Dosage: CALICUM 500 MG+ VITAMIN D 400 MG
  14. ATENOL [Concomitant]
     Dosage: 1 TABLET (35 MG)

REACTIONS (1)
  - WEIGHT INCREASED [None]
